FAERS Safety Report 9049504 (Version 2)
Quarter: 2013Q1

REPORT INFORMATION
  Report Type: Spontaneous
  Country: TW (occurrence: TW)
  Receive Date: 20130205
  Receipt Date: 20130207
  Transmission Date: 20140127
  Serious: Yes (Hospitalization)
  Sender: FDA-Public Use
  Company Number: PHHY2013TW008853

PATIENT
  Age: 76 Year
  Sex: Male
  Weight: 60 kg

DRUGS (8)
  1. TICLOPIDINE [Suspect]
  2. CLOPIDOGREL [Suspect]
  3. HEPARIN [Suspect]
  4. DALTEPARIN [Suspect]
     Dosage: 2500 DF, Q12H
     Route: 058
  5. BISOPROLOL [Concomitant]
  6. ISOSORBID MONONITRATE [Concomitant]
  7. NITROGLYCERIN [Concomitant]
  8. AMLODIPINE [Concomitant]
     Dosage: 3600 UNITS (60 U/KG)

REACTIONS (20)
  - Respiratory acidosis [Recovered/Resolved]
  - Respiratory distress [Recovered/Resolved]
  - Abdominal compartment syndrome [Recovered/Resolved]
  - Neuropathy peripheral [Recovered/Resolved]
  - Pleural effusion [Recovered/Resolved]
  - Conjunctival pallor [Recovered/Resolved]
  - Retroperitoneal haematoma [Recovered/Resolved]
  - Haemothorax [Recovered/Resolved]
  - Haematemesis [Recovered/Resolved]
  - Abdominal pain lower [Recovered/Resolved]
  - Pain in extremity [Recovered/Resolved]
  - Hypotension [Recovered/Resolved]
  - Tachycardia [Recovered/Resolved]
  - Haemoglobin decreased [Recovered/Resolved]
  - Abdominal distension [Recovered/Resolved]
  - Hypoventilation [Recovered/Resolved]
  - Ascites [Recovered/Resolved]
  - Haemorrhage [Recovered/Resolved]
  - Muscular weakness [Recovered/Resolved]
  - Hypoaesthesia [Recovered/Resolved]
